FAERS Safety Report 10721111 (Version 1)
Quarter: 2015Q1

REPORT INFORMATION
  Report Type: Spontaneous
  Country: CN (occurrence: CN)
  Receive Date: 20150119
  Receipt Date: 20150119
  Transmission Date: 20150721
  Serious: Yes (Other)
  Sender: FDA-Public Use
  Company Number: CN-SA-2015SA001569

PATIENT
  Age: 55 Year
  Sex: Male

DRUGS (2)
  1. TEGAFUR [Suspect]
     Active Substance: TEGAFUR
     Indication: ADENOCARCINOMA
     Dosage: IVGTT
     Dates: start: 201111, end: 201204
  2. OXALIPLATIN. [Suspect]
     Active Substance: OXALIPLATIN
     Indication: ADENOCARCINOMA
     Dosage: IVGTT
     Dates: start: 201111, end: 201204

REACTIONS (12)
  - Gastrooesophageal reflux disease [Unknown]
  - Spleen disorder [Recovering/Resolving]
  - Tongue discolouration [Recovering/Resolving]
  - Hypoaesthesia [Unknown]
  - Peripheral coldness [Unknown]
  - Product use issue [Unknown]
  - Fatigue [Unknown]
  - Decreased appetite [Unknown]
  - Neurotoxicity [Recovering/Resolving]
  - Muscular weakness [Recovering/Resolving]
  - Paraesthesia [Unknown]
  - Abdominal distension [Unknown]
